FAERS Safety Report 18225244 (Version 1)
Quarter: 2020Q3

REPORT INFORMATION
  Report Type: Spontaneous
  Country: CA (occurrence: CA)
  Receive Date: 20200903
  Receipt Date: 20200903
  Transmission Date: 20201103
  Serious: Yes (Hospitalization)
  Sender: FDA-Public Use
  Company Number: CA-TEVA-2020-CA-1820091

PATIENT
  Age: 9 Year
  Sex: Female
  Weight: 42 kg

DRUGS (8)
  1. DIGOXIN. [Concomitant]
     Active Substance: DIGOXIN
  2. IVIG [Concomitant]
     Active Substance: HUMAN IMMUNOGLOBULIN G
  3. PREDNISONE. [Suspect]
     Active Substance: PREDNISONE
     Indication: DERMATOMYOSITIS
     Dosage: 17.5 MILLIGRAM DAILY;
     Route: 048
  4. CALCIUM [Concomitant]
     Active Substance: CALCIUM
  5. MYCOPHENOLATE MOFETIL. [Concomitant]
     Active Substance: MYCOPHENOLATE MOFETIL
  6. BISOPROLOL [Concomitant]
     Active Substance: BISOPROLOL
  7. ENALAPRIL [Concomitant]
     Active Substance: ENALAPRIL
  8. VITAMIN D [Concomitant]
     Active Substance: VITAMIN D NOS

REACTIONS (6)
  - Fatigue [Recovered/Resolved]
  - Adrenal insufficiency [Recovered/Resolved]
  - Vomiting [Recovered/Resolved]
  - Pyrexia [Recovered/Resolved]
  - Upper respiratory tract congestion [Recovered/Resolved]
  - Headache [Recovered/Resolved]
